FAERS Safety Report 20032637 (Version 1)
Quarter: 2021Q4

REPORT INFORMATION
  Report Type: Spontaneous
  Country: FR (occurrence: FR)
  Receive Date: 20211103
  Receipt Date: 20211103
  Transmission Date: 20220303
  Serious: Yes (Disabling, Other)
  Sender: FDA-Public Use
  Company Number: FR-ABBVIE-21K-056-4146195-00

PATIENT
  Sex: Male

DRUGS (3)
  1. VALPROATE SODIUM [Suspect]
     Active Substance: VALPROATE SODIUM
     Indication: Affective disorder
     Route: 065
  2. VALPROATE SODIUM [Suspect]
     Active Substance: VALPROATE SODIUM
     Route: 065
  3. VALPROATE SODIUM [Suspect]
     Active Substance: VALPROATE SODIUM
     Route: 065

REACTIONS (5)
  - Walking disability [Not Recovered/Not Resolved]
  - Mental disorder [Unknown]
  - Blindness [Not Recovered/Not Resolved]
  - Tremor [Not Recovered/Not Resolved]
  - Hypersensitivity [Not Recovered/Not Resolved]
